FAERS Safety Report 13575160 (Version 4)
Quarter: 2017Q3

REPORT INFORMATION
  Report Type: Report from Study
  Country: US (occurrence: US)
  Receive Date: 20170524
  Receipt Date: 20170719
  Transmission Date: 20171127
  Serious: Yes (Other)
  Sender: FDA-Public Use
  Company Number: US-AMGEN-USASL2017076789

PATIENT
  Sex: Male

DRUGS (1)
  1. ENBREL [Suspect]
     Active Substance: ETANERCEPT
     Indication: PSORIASIS
     Dosage: UNK EVERY 4 DAYS
     Route: 065
     Dates: end: 201704

REACTIONS (11)
  - Inflammation [Unknown]
  - Hypersomnia [Unknown]
  - Arthralgia [Unknown]
  - Stress [Unknown]
  - Mycobacterium tuberculosis complex test positive [Unknown]
  - Night sweats [Unknown]
  - Fatigue [Unknown]
  - Pain [Unknown]
  - Bronchitis [Unknown]
  - Pneumonia [Unknown]
  - Ill-defined disorder [Unknown]

NARRATIVE: CASE EVENT DATE: 2016
